FAERS Safety Report 10023287 (Version 2)
Quarter: 2014Q2

REPORT INFORMATION
  Report Type: Spontaneous
  Country: GR (occurrence: GR)
  Receive Date: 20140320
  Receipt Date: 20140623
  Transmission Date: 20141212
  Serious: Yes (Other)
  Sender: FDA-Public Use
  Company Number: GR-ROCHE-1368235

PATIENT
  Sex: Female
  Weight: 80 kg

DRUGS (3)
  1. ROACTEMRA [Suspect]
     Indication: RHEUMATOID ARTHRITIS
     Dosage: TOTAL 680MG/MONTH
     Route: 042
     Dates: start: 2011
  2. METHOTREXATE [Concomitant]
  3. PREZOLON [Concomitant]
     Route: 065

REACTIONS (1)
  - Breast cancer [Not Recovered/Not Resolved]
